FAERS Safety Report 19541462 (Version 5)
Quarter: 2021Q4

REPORT INFORMATION
  Report Type: Report from Study
  Country: US (occurrence: US)
  Receive Date: 20210714
  Receipt Date: 20211117
  Transmission Date: 20220303
  Serious: Yes (Other)
  Sender: FDA-Public Use
  Company Number: NVSC2021US148264

PATIENT
  Sex: Female

DRUGS (2)
  1. ENTRESTO [Suspect]
     Active Substance: SACUBITRIL\VALSARTAN
     Indication: Product used for unknown indication
     Dosage: 50 MG, BID (24/26 MG)
     Route: 048
     Dates: start: 20210426
  2. ENTRESTO [Suspect]
     Active Substance: SACUBITRIL\VALSARTAN
     Dosage: 100 MG, BID (49/51 MG)
     Route: 048

REACTIONS (8)
  - Muscle hypertrophy [Unknown]
  - Dehydration [Unknown]
  - Musculoskeletal chest pain [Unknown]
  - Weight fluctuation [Unknown]
  - Weight increased [Unknown]
  - Nasopharyngitis [Unknown]
  - Influenza [Recovering/Resolving]
  - Cough [Unknown]
